FAERS Safety Report 24737216 (Version 2)
Quarter: 2024Q4

REPORT INFORMATION
  Report Type: Report from Study
  Country: FR (occurrence: FR)
  Receive Date: 20241216
  Receipt Date: 20241223
  Transmission Date: 20250115
  Serious: Yes (Hospitalization, Other)
  Sender: BRISTOL-MYERS SQUIBB COMPANY
  Company Number: FR-BRISTOL-MYERS SQUIBB COMPANY-2024-192088

PATIENT
  Age: 64 Year
  Sex: Male

DRUGS (2)
  1. NIVOLUMAB [Suspect]
     Active Substance: NIVOLUMAB
     Indication: Bladder transitional cell carcinoma
     Route: 042
     Dates: start: 20240617
  2. NIVOLUMAB [Suspect]
     Active Substance: NIVOLUMAB
     Indication: Bladder cancer

REACTIONS (7)
  - Renal failure [Recovering/Resolving]
  - Dehydration [Unknown]
  - Diarrhoea [Unknown]
  - Vomiting [Unknown]
  - Weight decreased [Unknown]
  - General physical condition abnormal [Unknown]
  - Off label use [Unknown]

NARRATIVE: CASE EVENT DATE: 20241104
